FAERS Safety Report 4632173-X (Version None)
Quarter: 2005Q2

REPORT INFORMATION
  Report Type: 
  Country: None (occurrence: None)
  Receive Date: 20050331
  Receipt Date: 20040323
  Transmission Date: 20051028
  Serious: Yes (Life-Threatening, Hospitalization)
  Sender: FDA-Public Use
  Company Number: 200411440BCC

PATIENT
  Age: 71 Year
  Sex: Male
  Weight: 126.1 kg

DRUGS (5)
  1. ALEVE (CAPLET) [Suspect]
     Indication: ARTHRALGIA
     Dosage: IRR, ORAL
     Route: 048
     Dates: start: 20020717, end: 20030616
  2. ALEVE (CAPLET) [Suspect]
     Indication: MYALGIA
     Dosage: IRR, ORAL
     Route: 048
     Dates: start: 20020717, end: 20030616
  3. ZOCOR [Concomitant]
  4. VITAMINS [Concomitant]
  5. VITAMIN E [Concomitant]

REACTIONS (5)
  - DIZZINESS [None]
  - FAECES DISCOLOURED [None]
  - FEELING ABNORMAL [None]
  - GASTRIC ULCER HAEMORRHAGE [None]
  - HYPOTENSION [None]
